FAERS Safety Report 7370049-8 (Version None)
Quarter: 2011Q1

REPORT INFORMATION
  Report Type: 
  Country: None (occurrence: None)
  Receive Date: 20110323
  Receipt Date: 20101101
  Transmission Date: 20110831
  Serious: No
  Sender: FDA-Public Use
  Company Number: US-BAYER-201023396BCC

PATIENT
  Sex: Female

DRUGS (3)
  1. NEXIUM [Concomitant]
  2. ONE A DAY MENOPAUSE [Suspect]
     Indication: VITAMIN SUPPLEMENTATION
     Dosage: UNK
     Route: 048
     Dates: start: 20100914, end: 20101031
  3. IBUPROFEN [Concomitant]
     Dosage: UNK

REACTIONS (2)
  - ALOPECIA [None]
  - PRURITUS GENERALISED [None]
